FAERS Safety Report 7389275-7 (Version None)
Quarter: 2011Q2

REPORT INFORMATION
  Report Type: 
  Country: None (occurrence: None)
  Receive Date: 20110401
  Receipt Date: 20110325
  Transmission Date: 20111010
  Serious: Yes (Other)
  Sender: FDA-Public Use
  Company Number: JP-BAYER-2011-026029

PATIENT
  Sex: Female

DRUGS (1)
  1. ASPIRIN [Suspect]
     Indication: HEADACHE

REACTIONS (3)
  - HAEMATEMESIS [None]
  - FAECES DISCOLOURED [None]
  - SMALL INTESTINAL HAEMORRHAGE [None]
